FAERS Safety Report 24153608 (Version 2)
Quarter: 2024Q3

REPORT INFORMATION
  Report Type: Spontaneous
  Country: DE (occurrence: DE)
  Receive Date: 20240730
  Receipt Date: 20240801
  Transmission Date: 20241017
  Serious: Yes (Hospitalization, Other)
  Sender: INCYTE
  Company Number: DE-002147023-NVSC2024DE153490

PATIENT

DRUGS (1)
  1. RUXOLITINIB [Suspect]
     Active Substance: RUXOLITINIB
     Indication: Polycythaemia vera
     Dosage: 2 DOSAGE FORM, QD
     Route: 048
     Dates: start: 202403, end: 20240721

REACTIONS (5)
  - Anaemia [Unknown]
  - Intra-abdominal haemorrhage [Unknown]
  - Platelet count increased [Unknown]
  - Thrombosis [Unknown]
  - Varicose vein [Unknown]

NARRATIVE: CASE EVENT DATE: 20240701
